FAERS Safety Report 11111796 (Version 1)
Quarter: 2015Q2

REPORT INFORMATION
  Report Type: Spontaneous
  Country: US (occurrence: None)
  Receive Date: 20150513
  Receipt Date: 20150513
  Transmission Date: 20150821
  Serious: No
  Sender: FDA-Public Use
  Company Number: None

PATIENT
  Age: 55 Year
  Sex: Male
  Weight: 61.4 kg

DRUGS (1)
  1. CEFEPIME [Suspect]
     Active Substance: CEFEPIME\CEFEPIME HYDROCHLORIDE
     Indication: WOUND
     Dates: start: 20150423, end: 20150423

REACTIONS (3)
  - Hypotension [None]
  - Anaphylactic reaction [None]
  - Rash [None]

NARRATIVE: CASE EVENT DATE: 20150423
